FAERS Safety Report 5740901-5 (Version None)
Quarter: 2008Q2

REPORT INFORMATION
  Report Type: 
  Country: None (occurrence: None)
  Receive Date: 20080516
  Receipt Date: 20080516
  Transmission Date: 20081010
  Serious: Yes (Hospitalization, Disabling)
  Sender: FDA-Public Use
  Company Number: NZ-BOEHRINGER INGELHEIM GMBH, GERMANY-2008-BP-07275AU

PATIENT
  Sex: Female
  Weight: 48 kg

DRUGS (1)
  1. SPIRIVA [Suspect]
     Indication: CHRONIC OBSTRUCTIVE PULMONARY DISEASE
     Route: 055
     Dates: start: 20070101

REACTIONS (1)
  - CEREBROVASCULAR ACCIDENT [None]
